FAERS Safety Report 8298128-1 (Version None)
Quarter: 2012Q2

REPORT INFORMATION
  Report Type: 
  Country: None (occurrence: None)
  Receive Date: 20120419
  Receipt Date: 20120410
  Transmission Date: 20120825
  Serious: Yes (Hospitalization, Other)
  Sender: FDA-Public Use
  Company Number: FR-ASTRAZENECA-2012SE24634

PATIENT
  Age: 1020 Month
  Sex: Male

DRUGS (12)
  1. ISOSORBIDE MONONITRATE [Suspect]
     Route: 048
     Dates: end: 20120201
  2. ASPEGIC 1000 [Suspect]
     Route: 048
     Dates: end: 20120201
  3. LANTUS [Concomitant]
  4. ISOSORBIDE LP [Concomitant]
  5. DIAMICRON [Suspect]
     Route: 048
     Dates: end: 20120201
  6. PYOSTACINE [Suspect]
     Indication: ERYSIPELAS
     Route: 048
     Dates: end: 20120128
  7. MORPHINE SULFATE [Suspect]
     Route: 048
     Dates: end: 20120201
  8. MACROGOL BIOGARAN [Suspect]
     Route: 048
     Dates: end: 20120201
  9. SPASFON [Suspect]
     Route: 048
     Dates: start: 20120129, end: 20120130
  10. RILMENIDINE SERVIER [Suspect]
     Route: 048
     Dates: end: 20120201
  11. AMITRIPTYLINE HCL [Suspect]
     Route: 048
     Dates: end: 20120201
  12. ZESTORETIC [Suspect]
     Dosage: 20 MG / 12.5 MG 1 DF DAILY
     Route: 048
     Dates: end: 20120201

REACTIONS (6)
  - C-REACTIVE PROTEIN INCREASED [None]
  - NEUTROPHILIA [None]
  - ERYSIPELAS [None]
  - CYTOLYTIC HEPATITIS [None]
  - ACUTE PULMONARY OEDEMA [None]
  - CHOLESTASIS [None]
